FAERS Safety Report 10696271 (Version 4)
Quarter: 2018Q1

REPORT INFORMATION
  Report Type: Report from Study
  Country: US (occurrence: US)
  Receive Date: 20150107
  Receipt Date: 20180115
  Transmission Date: 20180508
  Serious: Yes (Other)
  Sender: FDA-Public Use
  Company Number: US-SA-2014SA179370

PATIENT
  Age: 66 Year
  Sex: Male

DRUGS (3)
  1. AUBAGIO [Suspect]
     Active Substance: TERIFLUNOMIDE
     Indication: MULTIPLE SCLEROSIS
     Route: 048
     Dates: start: 20141127, end: 20141225
  2. AUBAGIO [Suspect]
     Active Substance: TERIFLUNOMIDE
     Indication: MULTIPLE SCLEROSIS
     Route: 048
     Dates: start: 20150106, end: 20160101
  3. LODIPINE [Concomitant]
     Indication: HYPERTENSION

REACTIONS (7)
  - Walking disability [Unknown]
  - Pyrexia [Not Recovered/Not Resolved]
  - Gastrooesophageal reflux disease [Unknown]
  - Immune system disorder [Not Recovered/Not Resolved]
  - Headache [Unknown]
  - Vitamin B12 deficiency [Unknown]
  - Influenza [Unknown]

NARRATIVE: CASE EVENT DATE: 201412
